FAERS Safety Report 9541972 (Version 2)
Quarter: 2013Q3

REPORT INFORMATION
  Report Type: Report from Study
  Country: US (occurrence: US)
  Receive Date: 20130923
  Receipt Date: 20130927
  Transmission Date: 20140515
  Serious: Yes (Disabling, Other)
  Sender: FDA-Public Use
  Company Number: PHEH2013US019188

PATIENT
  Age: 73 Year
  Sex: Male
  Weight: 74.39 kg

DRUGS (10)
  1. AFINITOR [Suspect]
     Indication: PANCREATIC NEUROENDOCRINE TUMOUR
     Dosage: 10 MG, DAILY
     Dates: start: 20130613, end: 20130813
  2. AFINITOR [Suspect]
     Dosage: UNK
     Route: 048
  3. ASPIRIN [Concomitant]
     Indication: CORONARY ARTERY DISEASE
     Dosage: 81 MG, DAILY
     Route: 048
  4. ALTACE [Concomitant]
     Indication: HYPERTENSION
     Dosage: 5 MG, DAILY
     Route: 048
  5. NORVASC [Concomitant]
     Indication: HYPERTENSION
     Dosage: 2.5 MG, DAILY
     Route: 048
  6. CRESTOR [Concomitant]
     Indication: HYPERLIPIDAEMIA
     Dosage: 5 MG, DAILY
     Route: 048
  7. FINASTERIDE [Concomitant]
     Indication: BENIGN PROSTATIC HYPERPLASIA
     Dosage: 5 MG, UNK
  8. TAMSULOSIN [Concomitant]
     Indication: PROSTATIC DISORDER
     Dosage: 4 MG, UNK
  9. ZENPEP [Concomitant]
     Indication: DYSPEPSIA
     Dosage: 2 DF, TID
     Route: 048
     Dates: start: 20130821
  10. NITROGLYCERIN [Concomitant]

REACTIONS (7)
  - Hepatic lesion [Not Recovered/Not Resolved]
  - Sputum discoloured [Recovered/Resolved]
  - Oropharyngeal pain [Recovered/Resolved]
  - Chills [Recovered/Resolved]
  - Epistaxis [Recovered/Resolved]
  - Cough [Recovered/Resolved]
  - Pyrexia [Recovered/Resolved]
